FAERS Safety Report 4283478-6 (Version None)
Quarter: 2004Q1

REPORT INFORMATION
  Report Type: 
  Country: None (occurrence: None)
  Receive Date: 20040202
  Receipt Date: 20020705
  Transmission Date: 20041129
  Serious: Yes (Death, Hospitalization)
  Sender: FDA-Public Use
  Company Number: JP-BRISTOL-MYERS SQUIBB COMPANY-11938941

PATIENT
  Age: 30 Year
  Sex: Male

DRUGS (8)
  1. STOCRIN [Suspect]
     Indication: HIV INFECTION
     Dosage: 200 MG DAILY 27-MAR-2001 TO 01-APR-2001.
     Route: 048
     Dates: start: 20010327, end: 20021231
  2. VIDEX [Suspect]
     Indication: ACQUIRED IMMUNODEFICIENCY SYNDROME
     Dosage: PREVIOUS DOSE 500MG/D MAR 91-SEP 92, 400MG/D SEP92-JUL93, 250MG/D JUL 93-AUG 95
     Route: 048
     Dates: start: 20010327, end: 20021122
  3. VIDEX [Suspect]
     Indication: HIV INFECTION
     Dosage: PREVIOUS DOSE 500MG/D MAR 91-SEP 92, 400MG/D SEP92-JUL93, 250MG/D JUL 93-AUG 95
     Route: 048
     Dates: start: 20010327, end: 20021122
  4. ZERIT [Suspect]
     Indication: ACQUIRED IMMUNODEFICIENCY SYNDROME
     Dosage: PREVIOUSLY RECEIVED 80 MG/DAY AUG 95-JAN 97
     Route: 048
     Dates: start: 19970812, end: 20021122
  5. ZERIT [Suspect]
     Indication: HIV INFECTION
     Dosage: PREVIOUSLY RECEIVED 80 MG/DAY AUG 95-JAN 97
     Route: 048
     Dates: start: 19970812, end: 20021122
  6. KALETRA [Suspect]
     Indication: ACQUIRED IMMUNODEFICIENCY SYNDROME
     Dosage: DOSAGE FORM=TAB
     Route: 048
     Dates: start: 20021123, end: 20021231
  7. EPIVIR [Concomitant]
     Route: 048
     Dates: start: 19990812, end: 20010326
  8. VIRACEPT [Concomitant]
     Route: 048
     Dates: start: 19990812, end: 20010326

REACTIONS (6)
  - ASCITES [None]
  - HEPATIC CIRRHOSIS [None]
  - HEPATIC ENCEPHALOPATHY [None]
  - HEPATITIS C [None]
  - JAUNDICE [None]
  - MENINGITIS HERPES [None]
